FAERS Safety Report 13648937 (Version 1)
Quarter: 2017Q2

REPORT INFORMATION
  Report Type: Spontaneous
  Country: FR (occurrence: FR)
  Receive Date: 20170613
  Receipt Date: 20170613
  Transmission Date: 20170830
  Serious: Yes (Other)
  Sender: FDA-Public Use
  Company Number: FR-TEVA-777305ROM

PATIENT
  Age: 36 Year
  Sex: Male

DRUGS (5)
  1. GEMCITABINE [Suspect]
     Active Substance: GEMCITABINE\GEMCITABINE HYDROCHLORIDE
     Indication: PENILE CANCER
     Dosage: ON WEEK 1 AND WEEK 2
     Route: 065
  2. CISPLATIN. [Concomitant]
     Active Substance: CISPLATIN
     Indication: PENILE CANCER
     Dosage: ON DAY ONE, EVERY 14 DAYS
     Route: 065
  3. GEMCITABINE [Suspect]
     Active Substance: GEMCITABINE\GEMCITABINE HYDROCHLORIDE
     Indication: PENILE CANCER
     Dosage: ON WEEK 6 AND WEEK 7
     Route: 065
  4. GEMCITABINE [Suspect]
     Active Substance: GEMCITABINE\GEMCITABINE HYDROCHLORIDE
     Indication: PENILE CANCER
     Dosage: ON DAY 1, SIX CYCLES, EVERY 14 DAYS
     Route: 065
  5. GEMCITABINE [Suspect]
     Active Substance: GEMCITABINE\GEMCITABINE HYDROCHLORIDE
     Indication: PENILE CANCER
     Dosage: ON WEEK 3 AND WEEK 4
     Route: 065

REACTIONS (7)
  - Thrombocytopenia [Recovered/Resolved]
  - Enteritis [Unknown]
  - Rectal stenosis [Unknown]
  - Gastrointestinal perforation [Unknown]
  - Skin reaction [Recovered/Resolved]
  - Retroperitoneal fibrosis [Unknown]
  - Scrotal oedema [Recovered/Resolved]
